FAERS Safety Report 9172261 (Version 1)
Quarter: 2013Q1

REPORT INFORMATION
  Report Type: Spontaneous
  Country: US (occurrence: US)
  Receive Date: 20130319
  Receipt Date: 20130319
  Transmission Date: 20140127
  Serious: No
  Sender: FDA-Public Use
  Company Number: US-ASTRAZENECA-2013SE14866

PATIENT
  Sex: Female

DRUGS (4)
  1. CRESTOR [Suspect]
     Route: 048
  2. ALBUTEROL [Suspect]
     Route: 065
  3. UNSPECIFIED INGREDIENTS [Suspect]
     Route: 065
  4. WELCHOL [Concomitant]
     Indication: BLOOD CHOLESTEROL ABNORMAL

REACTIONS (4)
  - Poor peripheral circulation [Unknown]
  - Muscle spasms [Unknown]
  - Hypersensitivity [Unknown]
  - Adverse drug reaction [Unknown]
